FAERS Safety Report 19853668 (Version 2)
Quarter: 2021Q4

REPORT INFORMATION
  Report Type: Spontaneous
  Country: FR (occurrence: FR)
  Receive Date: 20210919
  Receipt Date: 20211119
  Transmission Date: 20220304
  Serious: Yes (Other)
  Sender: FDA-Public Use
  Company Number: FR-MLMSERVICE-20170103-0471893-1

PATIENT
  Age: 26 Year
  Sex: Female

DRUGS (5)
  1. ACETAMINOPHEN [Suspect]
     Active Substance: ACETAMINOPHEN
     Indication: Analgesic therapy
     Route: 042
  2. TRAMADOL [Suspect]
     Active Substance: TRAMADOL
     Indication: Analgesic therapy
     Route: 042
  3. NICARDIPINE [Concomitant]
     Active Substance: NICARDIPINE
     Indication: Posterior reversible encephalopathy syndrome
     Route: 065
  4. NEFOPAM [Concomitant]
     Active Substance: NEFOPAM
     Indication: Analgesic therapy
     Route: 042
  5. PHLOROGLUCINOL [Concomitant]
     Active Substance: PHLOROGLUCINOL
     Indication: Analgesic therapy
     Route: 042

REACTIONS (1)
  - Porphyria [Recovered/Resolved]
